APPROVED DRUG PRODUCT: ERYTHROCIN
Active Ingredient: ERYTHROMYCIN LACTOBIONATE
Strength: EQ 1GM BASE/VIAL
Dosage Form/Route: INJECTABLE;INJECTION
Application: N050609 | Product #002
Applicant: HOSPIRA INC
Approved: Sep 24, 1986 | RLD: Yes | RS: No | Type: DISCN